FAERS Safety Report 8217577-0 (Version None)
Quarter: 2012Q1

REPORT INFORMATION
  Report Type: 
  Country: None (occurrence: None)
  Receive Date: 20120319
  Receipt Date: 20120319
  Transmission Date: 20120608
  Serious: Yes (Death, Life-Threatening, Hospitalization)
  Sender: FDA-Public Use
  Company Number: None

PATIENT
  Sex: Male
  Weight: 35 kg

DRUGS (1)
  1. TRIMETHOPRIM + SULFAMETHOXAZOLE [Suspect]
     Indication: RESPIRATORY DISORDER
     Dosage: ?
     Route: 048
     Dates: start: 20120206, end: 20120207

REACTIONS (6)
  - ACUTE HEPATIC FAILURE [None]
  - HYPERKALAEMIA [None]
  - RESPIRATORY DISORDER [None]
  - HEPATORENAL SYNDROME [None]
  - ARRHYTHMIA [None]
  - TACHYCARDIA [None]
